FAERS Safety Report 6779189-5 (Version None)
Quarter: 2010Q2

REPORT INFORMATION
  Report Type: 
  Country: None (occurrence: None)
  Receive Date: 20100618
  Receipt Date: 20100604
  Transmission Date: 20101027
  Serious: Yes (Other)
  Sender: FDA-Public Use
  Company Number: JP-ROCHE-649106

PATIENT
  Sex: Female
  Weight: 60 kg

DRUGS (18)
  1. ACTEMRA [Suspect]
     Indication: RHEUMATOID ARTHRITIS
     Route: 041
     Dates: start: 20081107, end: 20081107
  2. ACTEMRA [Suspect]
     Route: 041
     Dates: start: 20081205, end: 20081205
  3. ACTEMRA [Suspect]
     Route: 041
     Dates: start: 20090109, end: 20090109
  4. ACTEMRA [Suspect]
     Route: 041
     Dates: start: 20090206, end: 20090206
  5. ACTEMRA [Suspect]
     Route: 041
     Dates: start: 20090306, end: 20090306
  6. ACTEMRA [Suspect]
     Route: 041
     Dates: start: 20090407, end: 20090407
  7. ACTEMRA [Suspect]
     Route: 041
     Dates: start: 20090508, end: 20090508
  8. ACTEMRA [Suspect]
     Route: 041
     Dates: start: 20090101
  9. AZULFIDINE [Concomitant]
     Dosage: DOSE FORM: ENTERIC COATING DRUG
     Route: 048
  10. PREDNISOLONE [Concomitant]
     Dosage: DOSE FORM: PERORAL AGENT
     Route: 048
     Dates: start: 20070718, end: 20071214
  11. PREDNISOLONE [Concomitant]
     Dosage: DOSE FORM: PERORAL AGENT
     Route: 048
     Dates: start: 20071215, end: 20080125
  12. PREDNISOLONE [Concomitant]
     Dosage: DOSE FORM: PERORAL AGENT
     Route: 048
     Dates: start: 20080126
  13. THYRADIN S [Concomitant]
     Route: 048
  14. ANETHOLTRITHION [Concomitant]
     Dosage: DRUG NAME: FELVITEN
     Route: 048
     Dates: start: 20081107
  15. EVOXAC [Concomitant]
     Route: 048
     Dates: start: 20081107
  16. GASTER D [Concomitant]
     Route: 048
     Dates: start: 20081107
  17. VOLTAREN [Concomitant]
     Dosage: DOSE FORM: PERORAL AGENT
     Route: 048
  18. PNEUMOVAX 23 [Concomitant]
     Dosage: PNEUMOVAX NP
     Route: 058
     Dates: start: 20090110

REACTIONS (2)
  - ILEUS [None]
  - THROMBOCYTOPENIA [None]
